FAERS Safety Report 24574457 (Version 1)
Quarter: 2024Q4

REPORT INFORMATION
  Report Type: Spontaneous
  Country: GB (occurrence: GB)
  Receive Date: 20241104
  Receipt Date: 20241104
  Transmission Date: 20250115
  Serious: Yes (Other)
  Sender: AUROBINDO
  Company Number: GB-MHRA-MED-202410220853324480-QNCHG

PATIENT
  Sex: Male
  Weight: 26 kg

DRUGS (1)
  1. MELATONIN [Suspect]
     Active Substance: MELATONIN
     Indication: Neurodevelopmental disorder
     Dosage: 2 MILLIGRAM ( BEFORE BEDTIME)
     Route: 065

REACTIONS (2)
  - Medication error [Unknown]
  - Illness [Recovering/Resolving]
